FAERS Safety Report 7686116-5 (Version None)
Quarter: 2011Q3

REPORT INFORMATION
  Report Type: 
  Country: None (occurrence: None)
  Receive Date: 20110816
  Receipt Date: 20110808
  Transmission Date: 20111222
  Serious: Yes (Hospitalization, Disabling)
  Sender: FDA-Public Use
  Company Number: PHHO2009DE04858

PATIENT
  Sex: Female
  Weight: 81 kg

DRUGS (3)
  1. EVEROLIMUS [Suspect]
     Indication: RENAL TRANSPLANT
     Dosage: 0.75 MG, BID
     Route: 048
     Dates: end: 20090403
  2. MYFORTIC [Suspect]
     Indication: RENAL TRANSPLANT
     Dosage: 720 MG, BID
     Route: 048
  3. METHYLPREDNISOLONE [Suspect]
     Dosage: 12 MG, QD

REACTIONS (4)
  - DYSPNOEA [None]
  - PNEUMONITIS [None]
  - ALVEOLITIS [None]
  - CHEST X-RAY ABNORMAL [None]
